FAERS Safety Report 5959697-7 (Version None)
Quarter: 2008Q4

REPORT INFORMATION
  Report Type: 
  Country: None (occurrence: None)
  Receive Date: 20081119
  Receipt Date: 20081119
  Transmission Date: 20090506
  Serious: No
  Sender: FDA-Public Use
  Company Number: None

PATIENT
  Age: 65 Year
  Sex: Female
  Weight: 74 kg

DRUGS (11)
  1. PHENYTOIN [Suspect]
     Indication: CONVULSION
     Dosage: 400 MG PO QD IN DIV DOSES
     Dates: start: 20071001
  2. VALTREX [Concomitant]
  3. HEPARIN [Concomitant]
  4. RANITIDINE [Concomitant]
  5. SIMVASTATIN [Concomitant]
  6. METFORMIN HCL [Concomitant]
  7. INSULIN [Concomitant]
  8. DEKAMETHASONE [Concomitant]
  9. ATIVAN [Concomitant]
  10. BENADRYL [Concomitant]
  11. PROMETHAZINE [Concomitant]

REACTIONS (1)
  - LEUKOPENIA [None]
